FAERS Safety Report 23850660 (Version 2)
Quarter: 2024Q2

REPORT INFORMATION
  Report Type: Spontaneous
  Country: US (occurrence: US)
  Receive Date: 20240513
  Receipt Date: 20240517
  Transmission Date: 20240717
  Serious: Yes (Other)
  Sender: FDA-Public Use
  Company Number: US-BIOGEN-2024BI01264104

PATIENT
  Sex: Female

DRUGS (18)
  1. TYSABRI [Suspect]
     Active Substance: NATALIZUMAB
     Indication: Multiple sclerosis
     Route: 050
     Dates: start: 20240418
  2. TYSABRI [Suspect]
     Active Substance: NATALIZUMAB
     Route: 050
     Dates: start: 20220721, end: 202209
  3. TYSABRI [Suspect]
     Active Substance: NATALIZUMAB
     Route: 050
     Dates: start: 20220721, end: 20220721
  4. TYSABRI [Suspect]
     Active Substance: NATALIZUMAB
     Route: 050
     Dates: start: 20220721, end: 20220818
  5. NESINA [Concomitant]
     Active Substance: ALOGLIPTIN BENZOATE
     Indication: Product used for unknown indication
     Dosage: DAILY
     Route: 050
  6. LIPITOR [Concomitant]
     Active Substance: ATORVASTATIN CALCIUM
     Indication: Product used for unknown indication
     Dosage: DAILY
     Route: 050
  7. VITAMIN D3 [Concomitant]
     Active Substance: CHOLECALCIFEROL
     Indication: Product used for unknown indication
     Dosage: 2000 UT, DAILY
     Route: 050
  8. FERROUS SULFATE [Concomitant]
     Active Substance: FERROUS SULFATE
     Indication: Product used for unknown indication
     Dosage: DAILY
     Route: 050
  9. FERROUS SULFATE [Concomitant]
     Active Substance: FERROUS SULFATE
     Dosage: DAILY
     Route: 050
  10. GLUCOPHAGE [Concomitant]
     Active Substance: METFORMIN HYDROCHLORIDE
     Indication: Product used for unknown indication
     Dosage: 2 TIMES DAILY WITH MEAL
     Route: 050
  11. CYTOTEC [Concomitant]
     Active Substance: MISOPROSTOL
     Indication: Product used for unknown indication
     Dosage: SUCK 4 TABLETS (800 MICROGRAMS) IN MOUTH ONCE FOR 1 DOSE
     Route: 050
     Dates: start: 20220901, end: 20220901
  12. NAPROSYN [Concomitant]
     Active Substance: NAPROXEN
     Indication: Pain
     Dosage: AS NEEDED WITH MEAL
     Route: 050
     Dates: start: 20220901
  13. Prenatal 1 PO [Concomitant]
     Indication: Product used for unknown indication
     Route: 050
  14. VITAMINS [Concomitant]
     Active Substance: VITAMINS
     Indication: Product used for unknown indication
     Dosage: 28-0.8 MG, TAKE 1 TABLE DAILY
     Route: 050
  15. GLUCOTROL [Concomitant]
     Active Substance: GLIPIZIDE
     Indication: Type 2 diabetes mellitus
     Dosage: 2 TIMES DAILY BEFORE MEAL
     Route: 050
  16. PRINIVIL [Concomitant]
     Active Substance: LISINOPRIL
     Indication: Type 2 diabetes mellitus
     Dosage: DAILY
     Route: 050
  17. METFORMIN [Concomitant]
     Active Substance: METFORMIN HYDROCHLORIDE
     Indication: Type 2 diabetes mellitus
     Route: 050
  18. ZESTRIL [Concomitant]
     Active Substance: LISINOPRIL
     Indication: Type 2 diabetes mellitus
     Dosage: DAILY
     Route: 050

REACTIONS (2)
  - Abortion spontaneous [Recovered/Resolved]
  - Maternal exposure during pregnancy [Recovered/Resolved]

NARRATIVE: CASE EVENT DATE: 20220101
